FAERS Safety Report 12299292 (Version 1)
Quarter: 2016Q2

REPORT INFORMATION
  Report Type: Spontaneous
  Country: US (occurrence: None)
  Receive Date: 20160422
  Receipt Date: 20160422
  Transmission Date: 20160815
  Serious: Yes (Other)
  Sender: FDA-Public Use
  Company Number: None

PATIENT
  Age: 47 Year
  Sex: Male
  Weight: 102.06 kg

DRUGS (1)
  1. SINOL M [Suspect]
     Active Substance: CAPSICUM
     Indication: CLUSTER HEADACHE
     Dosage: 1 SPRAY (S) IN THE MORNING INHALATION
     Route: 055
     Dates: start: 20160308, end: 20160331

REACTIONS (2)
  - Sinusitis [None]
  - Nasal discharge discolouration [None]

NARRATIVE: CASE EVENT DATE: 20160419
